FAERS Safety Report 9450891 (Version 1)
Quarter: 2013Q3

REPORT INFORMATION
  Report Type: Spontaneous
  Country: US (occurrence: US)
  Receive Date: 20130809
  Receipt Date: 20130809
  Transmission Date: 20140515
  Serious: Yes (Other)
  Sender: FDA-Public Use
  Company Number: US-BRISTOL-MYERS SQUIBB COMPANY-19177765

PATIENT
  Age: 35 Year
  Sex: Female

DRUGS (22)
  1. ABILIFY [Suspect]
     Dosage: 5MG-1IN1D
  2. PROTONIX [Concomitant]
  3. MS CONTIN [Concomitant]
     Indication: MYALGIA
  4. OXYCODONE [Concomitant]
     Indication: MYALGIA
  5. BACLOFEN [Concomitant]
  6. VITAMIN D [Concomitant]
  7. SYNTHROID [Concomitant]
     Indication: HYPOTHYROIDISM
  8. ESCITALOPRAM OXALATE [Concomitant]
  9. NITROGLYCERINE [Concomitant]
     Indication: MUSCULOSKELETAL CHEST PAIN
  10. NITROGLYCERINE [Concomitant]
     Indication: MIGRAINE
  11. SINGULAIR [Concomitant]
  12. ALBUTEROL [Concomitant]
     Route: 045
  13. VALIUM [Concomitant]
  14. IBUPROFEN [Concomitant]
  15. ONGLYZA TABS [Concomitant]
     Indication: DIABETES MELLITUS
  16. APIDRA [Concomitant]
     Dosage: 1DF=100-UNITS NOS
  17. CO-Q-10 PLUS [Concomitant]
  18. DOCUSATE SODIUM [Concomitant]
  19. COMPAZINE [Concomitant]
     Indication: NAUSEA
  20. IMITREX [Concomitant]
  21. ZYRTEC [Concomitant]
  22. PROTONIX [Concomitant]

REACTIONS (4)
  - Cholecystectomy [Unknown]
  - Hepatic cirrhosis [Unknown]
  - Endometriosis [Unknown]
  - Somnolence [Unknown]
